FAERS Safety Report 24124039 (Version 1)
Quarter: 2024Q3

REPORT INFORMATION
  Report Type: Spontaneous
  Country: FR (occurrence: FR)
  Receive Date: 20240723
  Receipt Date: 20240723
  Transmission Date: 20241017
  Serious: Yes (Life-Threatening, Hospitalization, Disabling, Other)
  Sender: CHEPLAPHARM
  Company Number: None

PATIENT
  Age: 15 Year
  Sex: Male
  Weight: 38.099 kg

DRUGS (22)
  1. DOXORUBICIN [Suspect]
     Active Substance: DOXORUBICIN
     Indication: B-cell lymphoma
     Route: 042
     Dates: start: 20231204, end: 20231204
  2. DOXORUBICIN [Suspect]
     Active Substance: DOXORUBICIN
     Indication: B-cell lymphoma
     Route: 042
     Dates: start: 20231224, end: 20231224
  3. ETOPOSIDE PHOSPHATE [Suspect]
     Active Substance: ETOPOSIDE PHOSPHATE
     Indication: B-cell lymphoma
     Dosage: DAILY DOSE: 260 MILLIGRAM
     Route: 042
     Dates: start: 20240115, end: 20240117
  4. ETOPOSIDE PHOSPHATE [Suspect]
     Active Substance: ETOPOSIDE PHOSPHATE
     Indication: B-cell lymphoma
     Dosage: DAILY DOSE: 260 MILLIGRAM
     Route: 042
     Dates: start: 20240203, end: 20240205
  5. VANCOMYCIN [Suspect]
     Active Substance: VANCOMYCIN
     Indication: Sepsis
     Dosage: TID?DAILY DOSE: 1140 MILLIGRAM
     Route: 042
     Dates: start: 20240218
  6. RITUXIMAB [Suspect]
     Active Substance: RITUXIMAB
     Indication: B-cell lymphoma
     Dosage: DAILY DOSE: 490 MILLIGRAM
     Route: 042
     Dates: start: 20231220, end: 20231220
  7. RITUXIMAB [Suspect]
     Active Substance: RITUXIMAB
     Indication: B-cell lymphoma
     Dosage: DAILY DOSE: 490 MILLIGRAM
     Route: 042
     Dates: start: 20240112, end: 20240112
  8. METHOTREXATE [Suspect]
     Active Substance: METHOTREXATE
     Indication: B-cell lymphoma
     Route: 042
     Dates: start: 20231203, end: 20231203
  9. METHOTREXATE [Suspect]
     Active Substance: METHOTREXATE
     Indication: B-cell lymphoma
     Route: 037
     Dates: start: 20231204, end: 20231204
  10. METHOTREXATE [Suspect]
     Active Substance: METHOTREXATE
     Indication: B-cell lymphoma
     Route: 042
     Dates: start: 20231223, end: 20231223
  11. METHOTREXATE [Suspect]
     Active Substance: METHOTREXATE
     Indication: B-cell lymphoma
     Route: 037
     Dates: start: 20231224, end: 20231224
  12. AMIKACIN [Suspect]
     Active Substance: AMIKACIN
     Indication: Sepsis
     Dosage: DAILY DOSE: 770 MILLIGRAM
     Route: 042
     Dates: start: 20240217, end: 20240218
  13. VINCRISTINE SULFATE [Suspect]
     Active Substance: VINCRISTINE SULFATE
     Indication: B-cell lymphoma
     Route: 042
     Dates: start: 20231125, end: 20231125
  14. VINCRISTINE SULFATE [Suspect]
     Active Substance: VINCRISTINE SULFATE
     Indication: B-cell lymphoma
     Route: 042
     Dates: start: 20231203, end: 20231203
  15. VINCRISTINE SULFATE [Suspect]
     Active Substance: VINCRISTINE SULFATE
     Indication: B-cell lymphoma
     Route: 042
     Dates: start: 20231223, end: 20231223
  16. CYTARABINE [Suspect]
     Active Substance: CYTARABINE
     Indication: B-cell lymphoma
     Dosage: DAILY DOSE: 132 MILLIGRAM
     Route: 042
     Dates: start: 20240113, end: 20240114
  17. CYTARABINE [Suspect]
     Active Substance: CYTARABINE
     Indication: B-cell lymphoma
     Dosage: DAILY DOSE: 3900 MILLIGRAM
     Route: 042
     Dates: start: 20240114, end: 20240115
  18. CYTARABINE [Suspect]
     Active Substance: CYTARABINE
     Indication: B-cell lymphoma
     Dosage: DAILY DOSE: 3900 MILLIGRAM
     Route: 042
     Dates: start: 20240205, end: 20240206
  19. CYCLOPHOSPHAMIDE [Suspect]
     Active Substance: CYCLOPHOSPHAMIDE
     Indication: B-cell lymphoma
     Route: 042
     Dates: start: 20231125, end: 20231125
  20. CYCLOPHOSPHAMIDE [Suspect]
     Active Substance: CYCLOPHOSPHAMIDE
     Indication: B-cell lymphoma
     Dosage: DAILY DOSE: 660 MILLIGRAM
     Route: 042
     Dates: start: 20231204, end: 20231207
  21. MEROPENEM ANHYDROUS [Suspect]
     Active Substance: MEROPENEM ANHYDROUS
     Indication: Sepsis
     Dosage: DAILY DOSE: 770 MILLIGRAM
     Route: 042
     Dates: start: 20240217, end: 20240226
  22. HYDROCORTISONE [Concomitant]
     Active Substance: HYDROCORTISONE\HYDROCORTISONE ACETATE
     Indication: Sepsis
     Route: 037
     Dates: start: 20231204, end: 20231224

REACTIONS (10)
  - Febrile bone marrow aplasia [Unknown]
  - Mucosal inflammation [Unknown]
  - Quadriparesis [Not Recovered/Not Resolved]
  - Febrile neutropenia [Unknown]
  - Altered state of consciousness [Unknown]
  - Palmar-plantar erythrodysaesthesia syndrome [Unknown]
  - Dysphagia [Unknown]
  - Respiratory disorder [Unknown]
  - Encephalitis [Unknown]
  - Off label use [Unknown]

NARRATIVE: CASE EVENT DATE: 20240215
